FAERS Safety Report 7113919-8 (Version None)
Quarter: 2010Q4

REPORT INFORMATION
  Report Type: 
  Country: None (occurrence: None)
  Receive Date: 20101119
  Receipt Date: 20101115
  Transmission Date: 20110411
  Serious: Yes (Hospitalization)
  Sender: FDA-Public Use
  Company Number: FR-SANOFI-AVENTIS-2010SA069415

PATIENT
  Age: 56 Year
  Sex: Female

DRUGS (4)
  1. RIFAMPICIN [Suspect]
     Route: 065
     Dates: start: 20050101, end: 20060601
  2. ISONIAZID [Suspect]
     Route: 065
     Dates: start: 20050101, end: 20060601
  3. PYRAZINAMIDE [Suspect]
     Route: 065
     Dates: start: 20050101, end: 20050401
  4. ETHAMBUTOL HYDROCHLORIDE [Suspect]
     Route: 065
     Dates: start: 20050101, end: 20050401

REACTIONS (3)
  - IMMUNE RECONSTITUTION SYNDROME [None]
  - LYMPHADENOPATHY [None]
  - LYMPHADENOPATHY MEDIASTINAL [None]
